FAERS Safety Report 9057487 (Version 1)
Quarter: 2013Q1

REPORT INFORMATION
  Report Type: Spontaneous
  Country: US (occurrence: US)
  Receive Date: 20130204
  Receipt Date: 20130204
  Transmission Date: 20140127
  Serious: No
  Sender: FDA-Public Use
  Company Number: US-PFIZER INC-2013044407

PATIENT
  Age: 63 Year
  Sex: Female

DRUGS (1)
  1. ADVIL [Suspect]
     Indication: MUSCLE STRAIN
     Dosage: UNK

REACTIONS (6)
  - Panic attack [Unknown]
  - Nervousness [Unknown]
  - Feeling jittery [Unknown]
  - Tremor [Unknown]
  - Middle insomnia [Unknown]
  - Feeling abnormal [Unknown]
